FAERS Safety Report 25109211 (Version 2)
Quarter: 2025Q3

REPORT INFORMATION
  Report Type: Spontaneous
  Country: US (occurrence: US)
  Receive Date: 20250323
  Receipt Date: 20250722
  Transmission Date: 20251021
  Serious: Yes (Hospitalization)
  Sender: SANOFI AVENTIS
  Company Number: US-SA-2025SA083036

PATIENT
  Age: 53 Year
  Sex: Male
  Weight: 101 kg

DRUGS (10)
  1. DUPIXENT [Suspect]
     Active Substance: DUPILUMAB
     Indication: Asthma
     Dosage: 300 MG, QOW
     Route: 058
     Dates: start: 2025, end: 2025
  2. METOPROLOL TARTRATE [Concomitant]
     Active Substance: METOPROLOL TARTRATE
  3. GABAPENTIN [Concomitant]
     Active Substance: GABAPENTIN
  4. TRAMADOL [Concomitant]
     Active Substance: TRAMADOL
  5. FUROSEMIDE [Concomitant]
     Active Substance: FUROSEMIDE
  6. BUDESONIDE [Concomitant]
     Active Substance: BUDESONIDE
  7. PREDNISONE [Concomitant]
     Active Substance: PREDNISONE
  8. AMLODIPINE BESYLATE [Concomitant]
     Active Substance: AMLODIPINE BESYLATE
  9. ATORVASTATIN CALCIUM [Concomitant]
     Active Substance: ATORVASTATIN CALCIUM
  10. CLOPIDOGREL [Concomitant]
     Active Substance: CLOPIDOGREL BISULFATE

REACTIONS (2)
  - Hospitalisation [Not Recovered/Not Resolved]
  - Inappropriate schedule of product administration [Unknown]

NARRATIVE: CASE EVENT DATE: 20250101
